FAERS Safety Report 10740525 (Version 1)
Quarter: 2015Q1

REPORT INFORMATION
  Report Type: Report from Study
  Country: CN (occurrence: CN)
  Receive Date: 20150127
  Receipt Date: 20150127
  Transmission Date: 20150721
  Serious: Yes (Other)
  Sender: FDA-Public Use
  Company Number: CN-ROCHE-1524640

PATIENT

DRUGS (6)
  1. CAPECITABINE. [Suspect]
     Active Substance: CAPECITABINE
     Indication: OESOPHAGEAL ADENOCARCINOMA
  2. CETUXIMAB [Suspect]
     Active Substance: CETUXIMAB
     Indication: OESOPHAGEAL ADENOCARCINOMA
     Dosage: MAINTAINING DOSE, ADMINISTERED OVER 1 H FOR UP TO 18 WEEKS
     Route: 065
  3. CISPLATIN. [Suspect]
     Active Substance: CISPLATIN
     Indication: GASTRIC CANCER
     Dosage: CYCLE REPEATED EVERY 21 DAYS.
     Route: 042
  4. CISPLATIN. [Suspect]
     Active Substance: CISPLATIN
     Indication: OESOPHAGEAL ADENOCARCINOMA
  5. CAPECITABINE. [Suspect]
     Active Substance: CAPECITABINE
     Indication: GASTRIC CANCER
     Dosage: CYCLE REPEATED EVRY 21 DAYS
     Route: 048
  6. CETUXIMAB [Suspect]
     Active Substance: CETUXIMAB
     Indication: GASTRIC CANCER
     Dosage: LOADING DOSE
     Route: 065

REACTIONS (14)
  - Thrombocytopenia [Unknown]
  - Trichomegaly [Unknown]
  - Palmar-plantar erythrodysaesthesia syndrome [Unknown]
  - Liver abscess [Recovered/Resolved]
  - Abdominal pain [Unknown]
  - Fatigue [Unknown]
  - Gastrointestinal haemorrhage [Recovered/Resolved]
  - Nausea [Unknown]
  - Rash [Unknown]
  - Electrolyte imbalance [Unknown]
  - Neutropenia [Unknown]
  - Febrile neutropenia [Unknown]
  - Anaemia [Unknown]
  - Vomiting [Unknown]
